FAERS Safety Report 9463959 (Version 1)
Quarter: 2013Q3

REPORT INFORMATION
  Report Type: Spontaneous
  Country: US (occurrence: US)
  Receive Date: 20130819
  Receipt Date: 20130819
  Transmission Date: 20140515
  Serious: No
  Sender: FDA-Public Use
  Company Number: US-BRISTOL-MYERS SQUIBB COMPANY-16793143

PATIENT
  Age: 50 Year
  Sex: Female

DRUGS (3)
  1. REYATAZ [Suspect]
     Indication: HIV INFECTION
     Dates: start: 20110204, end: 20120706
  2. EPZICOM [Suspect]
     Indication: HIV INFECTION
  3. NORVIR [Suspect]
     Indication: HIV INFECTION

REACTIONS (2)
  - Nausea [Unknown]
  - Weight increased [Unknown]
